FAERS Safety Report 25130037 (Version 1)
Quarter: 2025Q1

REPORT INFORMATION
  Report Type: Spontaneous
  Country: ES (occurrence: ES)
  Receive Date: 20250327
  Receipt Date: 20250327
  Transmission Date: 20250409
  Serious: Yes (Death, Other)
  Sender: SUNOVION
  Company Number: None

PATIENT

DRUGS (7)
  1. LATUDA [Suspect]
     Active Substance: LURASIDONE HYDROCHLORIDE
     Indication: Personality disorder
     Dosage: 74 MG ONCE A DAY
     Route: 048
     Dates: start: 202310
  2. QUETIAPINE [Suspect]
     Active Substance: QUETIAPINE
     Indication: Product used for unknown indication
     Dosage: 25 MG EVERY 12 HOURS IF NECESSARY
     Route: 065
     Dates: start: 20231201
  3. TRILEPTAL [Suspect]
     Active Substance: OXCARBAZEPINE
     Indication: Personality disorder
     Dosage: 450 MG EVERY 24 HOURS
     Route: 065
     Dates: start: 20241216
  4. ESTRADIOL [Concomitant]
     Active Substance: ESTRADIOL
     Indication: Transgender hormonal therapy
     Dosage: 4 DOSES EVERY 24 HOURS
     Route: 061
     Dates: start: 20240226
  5. VENLAFAXINE HYDROCHLORIDE [Concomitant]
     Active Substance: VENLAFAXINE HYDROCHLORIDE
     Indication: Product used for unknown indication
     Dosage: 225 MG EVERY 24 HOURS
     Route: 048
     Dates: start: 202310
  6. CLONIDINE [Concomitant]
     Active Substance: CLONIDINE
     Indication: Tourette^s disorder
     Route: 048
     Dates: start: 20240209
  7. RIVOTRIL [Concomitant]
     Active Substance: CLONAZEPAM
     Indication: Anxiety
     Route: 048
     Dates: start: 20230811

REACTIONS (3)
  - Cardio-respiratory arrest [Fatal]
  - Epilepsy [Fatal]
  - Off label use [Fatal]

NARRATIVE: CASE EVENT DATE: 20250312
